FAERS Safety Report 4896902-2 (Version None)
Quarter: 2006Q1

REPORT INFORMATION
  Report Type: 
  Country: None (occurrence: None)
  Receive Date: 20060126
  Receipt Date: 20060109
  Transmission Date: 20060701
  Serious: Yes (Hospitalization)
  Sender: FDA-Public Use
  Company Number: B0405967A

PATIENT
  Age: 60 Year
  Sex: Female

DRUGS (3)
  1. AVANDIA [Suspect]
     Dosage: 2 MG/TWICE PER DAY
     Dates: start: 20010601
  2. GLIBENCLAMIDE [Concomitant]
  3. METFORMIN HYDROCHLORIDE [Concomitant]

REACTIONS (4)
  - HEPATIC FAILURE [None]
  - HEPATITIS B SURFACE ANTIGEN POSITIVE [None]
  - HEPATOTOXICITY [None]
  - THROMBOCYTOPENIA [None]
